FAERS Safety Report 6963017-9 (Version None)
Quarter: 2010Q3

REPORT INFORMATION
  Report Type: 
  Country: None (occurrence: None)
  Receive Date: 20100831
  Receipt Date: 20100816
  Transmission Date: 20110219
  Serious: Yes (Other)
  Sender: FDA-Public Use
  Company Number: ACO_01797_2010

PATIENT
  Age: 74 Year
  Sex: Female
  Weight: 56.246 kg

DRUGS (2)
  1. AMPYRA [Suspect]
     Indication: MULTIPLE SCLEROSIS
     Dosage: 10 MG (10 MG BID ORAL)
     Route: 048
     Dates: start: 20100811, end: 20100812
  2. REBIF [Concomitant]

REACTIONS (3)
  - BALANCE DISORDER [None]
  - DISORIENTATION [None]
  - TREMOR [None]
